FAERS Safety Report 8991227 (Version 1)
Quarter: 2012Q4

REPORT INFORMATION
  Report Type: Spontaneous
  Country: US (occurrence: None)
  Receive Date: 20121220
  Receipt Date: 20121220
  Transmission Date: 20130627
  Serious: Yes (Other)
  Sender: FDA-Public Use
  Company Number: ACO_33397_2012

PATIENT
  Sex: Male

DRUGS (2)
  1. AMPYRA [Suspect]
     Indication: DRUG USE FOR UNKNOWN INDICATION
     Dosage: 1 tablet daily
  2. AMPYRA [Suspect]
     Indication: DRUG USE FOR UNKNOWN INDICATION
     Dosage: 2 tablets daily

REACTIONS (2)
  - Priapism [None]
  - Inappropriate schedule of drug administration [None]
